FAERS Safety Report 8002731-3 (Version None)
Quarter: 2011Q4

REPORT INFORMATION
  Report Type: 
  Country: None (occurrence: None)
  Receive Date: 20111222
  Receipt Date: 20111216
  Transmission Date: 20120403
  Serious: Yes (Other)
  Sender: FDA-Public Use
  Company Number: US-ELI_LILLY_AND_COMPANY-US201112005604

PATIENT
  Sex: Male

DRUGS (4)
  1. ANGIOMAX [Concomitant]
  2. EFFIENT [Suspect]
     Indication: STENT PLACEMENT
     Dosage: 60 MG, LOADING DOSE
  3. EFFIENT [Suspect]
     Dosage: 10 MG, UNKNOWN
  4. ASPIRIN [Concomitant]

REACTIONS (1)
  - DEVICE OCCLUSION [None]
